FAERS Safety Report 17448807 (Version 1)
Quarter: 2020Q1

REPORT INFORMATION
  Report Type: Spontaneous
  Country: BE (occurrence: BE)
  Receive Date: 20200224
  Receipt Date: 20200224
  Transmission Date: 20200409
  Serious: Yes (Other)
  Sender: FDA-Public Use
  Company Number: BE-ROCHE-2548422

PATIENT
  Age: 74 Year
  Sex: Male
  Weight: 85 kg

DRUGS (1)
  1. MABTHERA [Suspect]
     Active Substance: RITUXIMAB
     Indication: DIFFUSE LARGE B-CELL LYMPHOMA
     Route: 065
     Dates: start: 20180814, end: 20190103

REACTIONS (9)
  - Injury [Unknown]
  - Dizziness [Unknown]
  - Fall [Unknown]
  - Femur fracture [Unknown]
  - Neuropathy peripheral [Unknown]
  - Diffuse large B-cell lymphoma recurrent [Unknown]
  - Neutropenia [Unknown]
  - Headache [Unknown]
  - Gait disturbance [Unknown]

NARRATIVE: CASE EVENT DATE: 20190103
